FAERS Safety Report 21223677 (Version 1)
Quarter: 2022Q3

REPORT INFORMATION
  Report Type: Spontaneous
  Country: US (occurrence: None)
  Receive Date: 20220817
  Receipt Date: 20220817
  Transmission Date: 20221027
  Serious: No
  Sender: FDA-Public Use
  Company Number: 2022A279063

PATIENT
  Age: 70 Year
  Sex: Female
  Weight: 74.6 kg

DRUGS (1)
  1. SYMBICORT [Suspect]
     Active Substance: BUDESONIDE\FORMOTEROL FUMARATE DIHYDRATE
     Indication: Bronchitis chronic
     Dosage: 160/4.5MCG, 120 ACTUATION INHALER, ONE PUFF TWICE A DAY, BY INHALATION
     Route: 055
     Dates: start: 2008

REACTIONS (7)
  - Body height decreased [Unknown]
  - Gout [Unknown]
  - Osteoarthritis [Unknown]
  - Memory impairment [Unknown]
  - Device malfunction [Unknown]
  - Wrong technique in device usage process [Not Recovered/Not Resolved]
  - Product dose omission issue [Unknown]

NARRATIVE: CASE EVENT DATE: 20080101
